FAERS Safety Report 7621843-7 (Version None)
Quarter: 2011Q3

REPORT INFORMATION
  Report Type: 
  Country: None (occurrence: None)
  Receive Date: 20110720
  Receipt Date: 20110712
  Transmission Date: 20111222
  Serious: Yes (Hospitalization)
  Sender: FDA-Public Use
  Company Number: US-BIOGENIDEC-2011BI026088

PATIENT
  Age: 55 Year
  Sex: Female

DRUGS (3)
  1. AVONEX [Suspect]
     Route: 030
     Dates: start: 20110704
  2. AVONEX [Suspect]
     Route: 030
     Dates: start: 20110620, end: 20110627
  3. AVONEX [Suspect]
     Indication: MULTIPLE SCLEROSIS
     Route: 030
     Dates: start: 20110606, end: 20110613

REACTIONS (7)
  - MULTIPLE SCLEROSIS RELAPSE [None]
  - PAIN IN EXTREMITY [None]
  - BALANCE DISORDER [None]
  - FALL [None]
  - DIZZINESS [None]
  - LOSS OF CONTROL OF LEGS [None]
  - INFLUENZA LIKE ILLNESS [None]
